FAERS Safety Report 9370361 (Version 1)
Quarter: 2013Q2

REPORT INFORMATION
  Report Type: Spontaneous
  Country: FR (occurrence: FR)
  Receive Date: 20130626
  Receipt Date: 20130626
  Transmission Date: 20140414
  Serious: Yes (Hospitalization)
  Sender: FDA-Public Use
  Company Number: FR-ASTRAZENECA-2013SE47317

PATIENT
  Age: 1120 Month
  Sex: Female

DRUGS (9)
  1. INEXIUM [Suspect]
     Route: 048
     Dates: start: 2010
  2. SINGULAIR [Suspect]
     Route: 048
     Dates: start: 2010, end: 201303
  3. DAFALGAN [Suspect]
     Route: 048
     Dates: start: 2010
  4. CHRONADALATE [Suspect]
     Route: 048
     Dates: start: 2010, end: 20130523
  5. TARDYFERON [Suspect]
     Route: 048
     Dates: start: 2010, end: 201303
  6. CACIT VITAMINE D3 [Suspect]
     Dosage: 1 DF, EVERY DAY
     Route: 048
     Dates: start: 2010
  7. DISCOTRINE [Suspect]
     Route: 062
     Dates: start: 2010
  8. PREVISCAN [Suspect]
     Route: 048
     Dates: start: 2010
  9. TAHOR [Suspect]
     Route: 048
     Dates: start: 2010

REACTIONS (1)
  - Toxic skin eruption [Unknown]
